FAERS Safety Report 8502618-3 (Version None)
Quarter: 2012Q3

REPORT INFORMATION
  Report Type: 
  Country: None (occurrence: None)
  Receive Date: 20120711
  Receipt Date: 20120705
  Transmission Date: 20120928
  Serious: Yes (Other)
  Sender: FDA-Public Use
  Company Number: US-PFIZER INC-2012162456

PATIENT
  Sex: Male
  Weight: 90.703 kg

DRUGS (9)
  1. TERAZOSIN [Concomitant]
     Indication: PROSTATIC DISORDER
     Dosage: 2 MG, DAILY
  2. ALPRAZOLAM [Suspect]
     Indication: HYPOTONIA
     Dosage: UNK
  3. PHENYTOIN SODIUM [Suspect]
     Indication: CONVULSION
     Dosage: 300 MG IN THE MORNING, 200 MG IN THE AFTERNOON AND 300 MG IN THE EVENING
     Dates: start: 20120503
  4. DILANTIN-125 [Suspect]
     Dosage: 300 MG IN THE MORNING, 200 MG IN THE AFTERNOON AND 300 MG IN THE EVENING
     Dates: end: 20120503
  5. DILANTIN-125 [Suspect]
     Dosage: 300 MG IN THE MORNING, 200 MG IN THE AFTERNOON AND 300 MG IN THE EVENING
     Dates: start: 20120601
  6. ALPRAZOLAM [Suspect]
     Indication: ANXIETY
     Dosage: 1 MG, 5X/DAY
  7. NAPROXEN [Concomitant]
     Indication: PAIN
     Dosage: 500 MG, 2X/DAY
  8. PHENYTOIN SODIUM [Suspect]
     Dosage: UNK
     Dates: end: 20120601
  9. DILANTIN-125 [Suspect]
     Indication: CONVULSION
     Dosage: UNK

REACTIONS (7)
  - FINGER DEFORMITY [None]
  - ROAD TRAFFIC ACCIDENT [None]
  - CONVULSION [None]
  - FACIAL BONES FRACTURE [None]
  - DRUG CLEARANCE INCREASED [None]
  - PAIN [None]
  - MUSCLE TIGHTNESS [None]
